FAERS Safety Report 23263477 (Version 1)
Quarter: 2023Q4

REPORT INFORMATION
  Report Type: Spontaneous
  Country: US (occurrence: None)
  Receive Date: 20231205
  Receipt Date: 20231205
  Transmission Date: 20240109
  Serious: No
  Sender: FDA-Public Use
  Company Number: None

PATIENT
  Sex: Female
  Weight: 74.84 kg

DRUGS (16)
  1. KEPPRA [Suspect]
     Active Substance: LEVETIRACETAM
     Indication: Seizure
  2. KEPPRA [Suspect]
     Active Substance: LEVETIRACETAM
     Indication: Procedural pain
  3. TRAMADOL [Suspect]
     Active Substance: TRAMADOL\TRAMADOL HYDROCHLORIDE
  4. DEVICE [Concomitant]
     Active Substance: DEVICE
  5. FUROSEMIDE [Concomitant]
     Active Substance: FUROSEMIDE
  6. LOVASTATIN [Concomitant]
     Active Substance: LOVASTATIN
  7. HYDROXYCHLOROQUINE [Concomitant]
     Active Substance: HYDROXYCHLOROQUINE
  8. PANTOPRAZOLE SODIUM [Concomitant]
     Active Substance: PANTOPRAZOLE SODIUM
  9. LOSARTAN TAB (COZAAR) [Concomitant]
  10. KLOR-CON [Concomitant]
     Active Substance: POTASSIUM CHLORIDE
  11. VITAMINS [Concomitant]
     Active Substance: VITAMINS
  12. VERAPAMIL [Concomitant]
     Active Substance: VERAPAMIL HYDROCHLORIDE
  13. LEVOTHYROXINE [Concomitant]
     Active Substance: LEVOTHYROXINE
  14. KEPPRA [Concomitant]
     Active Substance: LEVETIRACETAM
  15. FLUTICASONE PROPIONATE [Concomitant]
     Active Substance: FLUTICASONE PROPIONATE
  16. HERBALS [Concomitant]
     Active Substance: HERBALS

REACTIONS (4)
  - Knee arthroplasty [None]
  - Contraindicated product prescribed [None]
  - Contraindicated product administered [None]
  - Fatigue [None]
